FAERS Safety Report 7661557-0 (Version None)
Quarter: 2011Q3

REPORT INFORMATION
  Report Type: 
  Country: None (occurrence: None)
  Receive Date: 20110805
  Receipt Date: 20101022
  Transmission Date: 20111222
  Serious: No
  Sender: FDA-Public Use
  Company Number: US-ABBOTT-10P-163-0680398-00

PATIENT
  Sex: Male
  Weight: 147.55 kg

DRUGS (2)
  1. UNKNOWN BLOOD PRESSURE MEDICATION [Concomitant]
     Indication: HYPERTENSION
  2. NIASPAN [Suspect]
     Indication: BLOOD CHOLESTEROL INCREASED
     Dates: start: 20101018, end: 20101022

REACTIONS (4)
  - DYSPNOEA [None]
  - FLUSHING [None]
  - FALL [None]
  - DIZZINESS [None]
